FAERS Safety Report 20418693 (Version 1)
Quarter: 2022Q1

REPORT INFORMATION
  Report Type: Spontaneous
  Country: US (occurrence: US)
  Receive Date: 20220202
  Receipt Date: 20220202
  Transmission Date: 20220423
  Serious: Yes (Hospitalization, Congenital Anomaly, Other)
  Sender: FDA-Public Use
  Company Number: US-TEVA-2022-US-2003503

PATIENT
  Age: 0 Year
  Sex: Female
  Weight: 3.035 kg

DRUGS (14)
  1. FENTANYL TRANSDERMAL SYSTEM [Suspect]
     Active Substance: FENTANYL
     Dosage: THE SUSPECT MEDICATION WAS TAKEN BY THE BIOLOGICAL FATHER
     Route: 065
  2. BUPROPION HYDROCHLORIDE [Suspect]
     Active Substance: BUPROPION HYDROCHLORIDE
     Dosage: 1 TAB ORALLY FOR 3 DAYS, THEN 1 TAB ORALLY 2 TIMES A DAY FOR AT LEAST WEEKS
     Route: 064
     Dates: start: 20100505, end: 20110205
  3. ERYTHROMYCIN BASE [Suspect]
     Active Substance: ERYTHROMYCIN
     Route: 064
  4. VICODIN [Suspect]
     Active Substance: ACETAMINOPHEN\HYDROCODONE BITARTRATE
     Indication: Back pain
     Dosage: ACETAMINOPHEN 5 MG, HYDROCODONE 500 MG, DO NOT TAKE MORE THAN 8 TABLETS A DAY
     Route: 064
  5. PERCOCET [Suspect]
     Active Substance: ACETAMINOPHEN\OXYCODONE HYDROCHLORIDE
     Indication: Back pain
     Route: 064
     Dates: start: 2009
  6. NORCO [Suspect]
     Active Substance: ACETAMINOPHEN\HYDROCODONE BITARTRATE
     Indication: Pain
     Dosage: ACETAMINOPHEN 10 MG, HYDROCODONE 325 MG, DO NOT EXCEED 4 TABLETS IN 24 HOURS
     Route: 064
     Dates: start: 20100413
  7. AMBIEN [Suspect]
     Active Substance: ZOLPIDEM TARTRATE
     Indication: Sleep disorder
     Dosage: 10 MILLIGRAM DAILY; AT BEDTIME
     Route: 064
     Dates: start: 20080226
  8. SOMA [Suspect]
     Active Substance: CARISOPRODOL
     Indication: Muscle spasms
     Dosage: 87.5 MILLIGRAM DAILY;
     Route: 064
     Dates: start: 20080221
  9. MORPHINE [Suspect]
     Active Substance: MORPHINE
     Dosage: THE SUSPECT MEDICATION WAS TAKEN BY THE BIOLOGICAL FATHER
     Route: 065
  10. DILAUDID [Suspect]
     Active Substance: HYDROMORPHONE HYDROCHLORIDE
     Dosage: THE SUSPECT MEDICATION WAS TAKEN BY THE BIOLOGICAL FATHER
     Route: 065
  11. ALCOHOL [Suspect]
     Active Substance: ALCOHOL
     Route: 064
  12. CANNABIS SATIVA SUBSP. INDICA TOP [Suspect]
     Active Substance: CANNABIS SATIVA SUBSP. INDICA TOP
     Route: 064
  13. NICOTINE [Concomitant]
     Active Substance: NICOTINE
     Dosage: 21 MG/ 24 HR, APPLY 1 PATCH TO CLEAN, DRY SKIN DAILY FOR 4 WEEKS. APPLY TO A DIFFERENT SITE EACH DAY
     Route: 064
     Dates: start: 20090709
  14. NITROFURANTOIN MONOHYDRATE [Concomitant]
     Active Substance: NITROFURANTOIN MONOHYDRATE
     Dosage: 50 MILLIGRAM DAILY; WITH FOOD
     Route: 064
     Dates: start: 20080929

REACTIONS (18)
  - Duane^s syndrome [Not Recovered/Not Resolved]
  - Syndactyly [Not Recovered/Not Resolved]
  - Congenital hand malformation [Not Recovered/Not Resolved]
  - Micrognathia [Not Recovered/Not Resolved]
  - Eyelid ptosis congenital [Not Recovered/Not Resolved]
  - Drug withdrawal syndrome neonatal [Recovered/Resolved]
  - Hepatic calcification [Not Recovered/Not Resolved]
  - Facial paralysis [Unknown]
  - Tooth disorder [Unknown]
  - Foetal distress syndrome [Recovered/Resolved]
  - Paternal exposure timing unspecified [Unknown]
  - Foetal exposure during pregnancy [Unknown]
  - Poor feeding infant [Recovered/Resolved]
  - Speech disorder [Unknown]
  - Foetal movement disorder [Unknown]
  - Jaundice neonatal [Unknown]
  - Behaviour disorder [Unknown]
  - Tachycardia [Unknown]

NARRATIVE: CASE EVENT DATE: 20100501
